FAERS Safety Report 24414393 (Version 1)
Quarter: 2024Q4

REPORT INFORMATION
  Report Type: Spontaneous
  Country: JP (occurrence: JP)
  Receive Date: 20241009
  Receipt Date: 20241009
  Transmission Date: 20250114
  Serious: Yes (Life-Threatening, Other)
  Sender: MERCK
  Company Number: JP-009507513-2410JPN001845

PATIENT
  Age: 50 Year
  Sex: Female
  Weight: 86 kg

DRUGS (29)
  1. SUGAMMADEX SODIUM [Suspect]
     Active Substance: SUGAMMADEX SODIUM
     Indication: Neuromuscular blockade reversal
     Dosage: 350 MILLIGRAM, QD
     Route: 042
     Dates: start: 20240927, end: 20240927
  2. IPRAGLIFLOZIN L-PROLINE [Concomitant]
     Active Substance: IPRAGLIFLOZIN L-PROLINE
     Indication: Product used for unknown indication
     Dosage: 100 MG ONCE DAILY AFTER BREAKFAST
     Route: 048
     Dates: start: 20240803, end: 20240926
  3. TRULICITY [Concomitant]
     Active Substance: DULAGLUTIDE
     Indication: Product used for unknown indication
     Dosage: EVERY THURSDAY, ALREADY ADMINISTERED ON THE MORNING OF 26-SEP-2024, DAY OF ADMISSION, 0.5 ML/
     Dates: start: 20240803
  4. LANTUS [Concomitant]
     Active Substance: INSULIN GLARGINE
     Indication: Product used for unknown indication
     Dosage: 6 IU BEFORE BEDTIME, 6 IU/ DAY
     Dates: start: 20240803
  5. LEXAPRO [Concomitant]
     Active Substance: ESCITALOPRAM OXALATE
     Indication: Product used for unknown indication
     Dosage: 20 MG AFTER DINNER, 20 MG/ DAY
     Route: 048
     Dates: start: 20240914
  6. SOLANAX [Concomitant]
     Active Substance: ALPRAZOLAM
     Indication: Product used for unknown indication
     Dosage: 0.4 MG AFTER BREAKFAST, 0.4 MG/ DAY
     Route: 048
     Dates: start: 20240914
  7. LORMETAZEPAM [Concomitant]
     Active Substance: LORMETAZEPAM
     Indication: Product used for unknown indication
     Dosage: 1 MG BEFORE BEDTIME, 1 MG/ DAY
     Route: 048
     Dates: start: 20240914
  8. STRATTERA [Concomitant]
     Active Substance: ATOMOXETINE HYDROCHLORIDE
     Indication: Product used for unknown indication
     Dosage: 120 MG AFTER BREAKFAST, 120 MG/ DAY
     Route: 048
     Dates: start: 20240914
  9. INTUNIV [Concomitant]
     Active Substance: GUANFACINE HYDROCHLORIDE
     Indication: Product used for unknown indication
     Dosage: 2 MG BEFORE BEDTIME, 2 MG/ DAY
     Route: 048
     Dates: start: 20240914
  10. RIVOTRIL [Concomitant]
     Active Substance: CLONAZEPAM
     Indication: Product used for unknown indication
     Dosage: 1 MG BEFORE BEDTIME, 1 MG/ DAY
     Route: 048
     Dates: start: 20240914
  11. GLUTATHIONE [Concomitant]
     Active Substance: GLUTATHIONE
     Indication: Product used for unknown indication
     Dosage: 200 MG AFTER BREAKFAST AND DINNER, 200 MG/ DAY
     Route: 048
     Dates: start: 20240827
  12. ESOMEPRAZOLE [Concomitant]
     Active Substance: ESOMEPRAZOLE
     Indication: Product used for unknown indication
     Dosage: 20 MG AFTER BREAKFAST, 20 MG/ DAY
     Route: 048
     Dates: start: 20240827
  13. CLARITHROMYCIN [Concomitant]
     Active Substance: CLARITHROMYCIN
     Indication: Product used for unknown indication
     Dosage: 200 MG AFTER BREAKFAST, 200 MG/ DAY
     Route: 048
     Dates: start: 20240827
  14. MIROGABALIN BESYLATE [Concomitant]
     Active Substance: MIROGABALIN BESYLATE
     Indication: Product used for unknown indication
     Dosage: 2.5 MG AFTER DINNER, 2.5 MG/ DAY
     Route: 048
     Dates: start: 20240827
  15. MOIZERTO [Concomitant]
     Indication: Product used for unknown indication
     Dosage: 20 G, 20 G/ DAY
     Dates: start: 20240827
  16. OZEX [TOSUFLOXACIN TOSILATE] [Concomitant]
     Indication: Product used for unknown indication
     Dosage: 300 MG AFTER BREAKFAST AND DINNER, 300 MG/ DAY
     Route: 048
     Dates: start: 20240608
  17. FEXOFENADINE HYDROCHLORIDE [Concomitant]
     Active Substance: FEXOFENADINE HYDROCHLORIDE
     Indication: Product used for unknown indication
     Dosage: 120 MG AFTER BREAKFAST AND DINNER, 120 MG/ DAY
     Route: 048
     Dates: start: 20240608
  18. ERIZAS [Concomitant]
     Indication: Product used for unknown indication
     Dosage: ONCE A DAY, ONE SPRAY AT A TIME
     Dates: start: 20240608
  19. PREDNISOLONE VALERATE ACETATE [Concomitant]
     Active Substance: PREDNISOLONE VALERATE ACETATE
     Indication: Product used for unknown indication
     Dosage: TWICE DAILY
     Route: 001
     Dates: start: 20240608
  20. SEVOFLURANE [Concomitant]
     Active Substance: SEVOFLURANE
     Indication: Routine health maintenance
     Dosage: 42.41 ML ABOUT 11:35-12:35,13:15-, 42.41 ML/
     Dates: start: 20240927
  21. PROPOFOL [Concomitant]
     Active Substance: PROPOFOL
     Indication: Induction and maintenance of anaesthesia
     Dosage: 230 MG ABOUT 11:55 150 MG,13:11 30 MG,13:45 50 MG
     Dates: start: 20240927
  22. ROCURONIUM BROMIDE [Concomitant]
     Active Substance: ROCURONIUM BROMIDE
     Indication: Induction and maintenance of anaesthesia
     Dosage: 100 MG ABOUT 11:28 80 MG,13:14 20 MG
     Dates: start: 20240927
  23. FENTANYL CITRATE [Concomitant]
     Active Substance: FENTANYL CITRATE
     Indication: Induction and maintenance of anaesthesia
     Dosage: 250 ?G ABOUT 11:25 50 MCG,11:40 100 MCG,11:55 50 MCG,12:05 50 MCG
     Dates: start: 20240927
  24. CEFAZOLIN SODIUM [Concomitant]
     Active Substance: CEFAZOLIN SODIUM
     Indication: Chronic sinusitis
     Dosage: DAILY DOSE: 1G
     Dates: start: 20240927
  25. EPINEPHRINE [Concomitant]
     Active Substance: EPINEPHRINE
     Indication: Chronic sinusitis
     Dosage: DAILY DOSE: 5 ?G
     Dates: start: 20240927
  26. POLARAMINE [Concomitant]
     Active Substance: DEXCHLORPHENIRAMINE MALEATE
     Indication: Chronic sinusitis
     Dosage: DAILY DOSE: 5 MG
     Dates: start: 20240927
  27. CALCIUM CHLORIDE\POTASSIUM CHLORIDE\SODIUM ACETATE\SODIUM CHLORIDE [Concomitant]
     Active Substance: CALCIUM CHLORIDE\POTASSIUM CHLORIDE\SODIUM ACETATE\SODIUM CHLORIDE
     Indication: Chronic sinusitis
     Dosage: DAILY DOSE: 480 ML
     Dates: start: 20240927
  28. CALCIUM GLUCONATE\DEXTROSE\MAGNESIUM CHLORIDE\POTASSIUM CHLORIDE\SODIU [Concomitant]
     Active Substance: CALCIUM GLUCONATE\DEXTROSE\MAGNESIUM CHLORIDE\POTASSIUM CHLORIDE\SODIUM ACETATE\SODIUM CHLORIDE\TRIS
     Indication: Chronic sinusitis
     Dosage: DAILY DOSE: 500 ML
     Dates: start: 20240927
  29. BICANATE [Concomitant]
     Active Substance: CALCIUM CHLORIDE\MAGNESIUM CHLORIDE\POTASSIUM CHLORIDE\SODIUM BICARBONATE\SODIUM CHLORIDE\TRISODIUM
     Indication: Chronic sinusitis
     Dosage: DAILY DOSE: 1000 ML
     Dates: start: 20240926

REACTIONS (1)
  - Anaphylactic reaction [Recovered/Resolved]

NARRATIVE: CASE EVENT DATE: 20240927
